FAERS Safety Report 13452878 (Version 3)
Quarter: 2017Q4

REPORT INFORMATION
  Report Type: Report from Study
  Country: CO (occurrence: CO)
  Receive Date: 20170418
  Receipt Date: 20171009
  Transmission Date: 20180320
  Serious: Yes (Other)
  Sender: FDA-Public Use
  Company Number: CO-REGENERON PHARMACEUTICALS, INC.-2017-14499

PATIENT

DRUGS (5)
  1. EYLEA [Suspect]
     Active Substance: AFLIBERCEPT
     Dosage: 2 MG, Q2MON (RIGHT EYE)
     Route: 031
     Dates: start: 20151212, end: 20151212
  2. EYLEA [Suspect]
     Active Substance: AFLIBERCEPT
     Dosage: 2 MG, Q2MON (RIGHT EYE)
     Route: 031
     Dates: start: 20160701, end: 20160701
  3. EYLEA [Suspect]
     Active Substance: AFLIBERCEPT
     Dosage: 2 MG, Q2MON (RIGHT EYE)
     Route: 031
     Dates: start: 20151001, end: 20151001
  4. EYLEA [Suspect]
     Active Substance: AFLIBERCEPT
     Indication: AGE-RELATED MACULAR DEGENERATION
     Dosage: 2 MG, Q2MON (RIGHT EYE)
     Route: 031
     Dates: start: 20150801, end: 20150801
  5. EYLEA [Suspect]
     Active Substance: AFLIBERCEPT
     Dosage: 2 MG, Q2MON (RIGHT EYE)
     Route: 031
     Dates: start: 20150901, end: 20150901

REACTIONS (4)
  - Eye oedema [Not Recovered/Not Resolved]
  - Inappropriate schedule of drug administration [Not Recovered/Not Resolved]
  - Eye inflammation [Not Recovered/Not Resolved]
  - Retinal oedema [Unknown]

NARRATIVE: CASE EVENT DATE: 201703
